FAERS Safety Report 7198388-4 (Version None)
Quarter: 2010Q4

REPORT INFORMATION
  Report Type: 
  Country: None (occurrence: None)
  Receive Date: 20101213
  Receipt Date: 20101130
  Transmission Date: 20110411
  Serious: Yes (Hospitalization, Other)
  Sender: FDA-Public Use
  Company Number: 2006JP002216

PATIENT
  Age: 10 Year
  Sex: Female

DRUGS (13)
  1. TACROLIMUS [Suspect]
     Indication: HEART TRANSPLANT
     Dosage: ORAL; 1.3 MG, BID, ORAL
     Route: 048
  2. TACROLIMUS [Suspect]
     Indication: HEART TRANSPLANT
     Dosage: ORAL; 1.3 MG, BID, ORAL
     Route: 048
  3. CELLCEPT [Suspect]
     Indication: HEART TRANSPLANT
     Dosage: 2000 MG, ORAL
     Route: 048
  4. PREDNISOLONE [Concomitant]
  5. AZATHIOPRINE (AZATHIOPRINE) PER ORAL NOS [Concomitant]
  6. RENIVACE (ENALAPRIL MALEATE) FORMULATION UNKNOWN [Concomitant]
  7. MEVALOTIN (PRAVASTATIN SODIUM) FORMULATION UNKNOWN [Concomitant]
  8. BUFFERIN (ACETYLSALICYLIC ACID, ALUMINIUM GLYCINATE) FORMULATION UNKNO [Concomitant]
  9. GASTER (FAMOTIDINE) FORMULATION UNKNOWN [Concomitant]
  10. BONALON (ALENDRONATE SODIUM) FORMULATION UNKNOWN [Concomitant]
  11. SELIS (ENALAPRIL MALEATE) FORMULATION UNKNOWN [Concomitant]
  12. PRAVASTATIN (PRAVASTATIN) FORMULATION UNKNOWN [Concomitant]
  13. FAMOTIDINE (FAMOTIDINE) FORMULATION UNKNOWN [Concomitant]

REACTIONS (9)
  - BRONCHITIS [None]
  - BRONCHITIS PNEUMOCOCCAL [None]
  - CHRONIC SINUSITIS [None]
  - DIFFUSE PANBRONCHIOLITIS [None]
  - HERPES ZOSTER [None]
  - OTITIS MEDIA [None]
  - PNEUMONIA PNEUMOCOCCAL [None]
  - PYREXIA [None]
  - UPPER RESPIRATORY TRACT INFLAMMATION [None]
